FAERS Safety Report 7537373-7 (Version None)
Quarter: 2011Q2

REPORT INFORMATION
  Report Type: 
  Country: None (occurrence: None)
  Receive Date: 20110603
  Receipt Date: 20110518
  Transmission Date: 20111010
  Serious: Yes (Hospitalization)
  Sender: FDA-Public Use
  Company Number: 2011MA006074

PATIENT
  Age: 8 Year
  Sex: Female

DRUGS (2)
  1. PHENOBARBITAL TAB [Suspect]
     Indication: EPILEPSY
     Dosage: 30 MG
  2. CETIRIZINE HCL [Suspect]
     Dosage: 10 MG;1X

REACTIONS (6)
  - CHILLS [None]
  - ADVERSE DRUG REACTION [None]
  - NEUTROPHIL PERCENTAGE INCREASED [None]
  - PYREXIA [None]
  - ERYTHEMA MULTIFORME [None]
  - SWELLING [None]
